FAERS Safety Report 10094439 (Version 2)
Quarter: 2014Q2

REPORT INFORMATION
  Report Type: Spontaneous
  Country: US (occurrence: US)
  Receive Date: 20140422
  Receipt Date: 20140422
  Transmission Date: 20141212
  Serious: Yes (Hospitalization)
  Sender: FDA-Public Use
  Company Number: US-JNJFOC-20140401754

PATIENT
  Age: 70 Year
  Sex: Male
  Weight: 108 kg

DRUGS (9)
  1. IMBRUVICA [Suspect]
     Indication: CHRONIC LYMPHOCYTIC LEUKAEMIA
     Route: 048
     Dates: start: 20140220
  2. XARELTO [Suspect]
     Indication: DEEP VEIN THROMBOSIS
     Route: 048
     Dates: end: 201403
  3. LISINOPRIL [Concomitant]
     Indication: HYPERTENSION
  4. TESSALON PERLE [Concomitant]
     Indication: COUGH
  5. CELEBREX [Concomitant]
     Indication: ARTHRALGIA
     Dates: end: 2014
  6. NEXIUM [Concomitant]
     Indication: GASTROOESOPHAGEAL REFLUX DISEASE
  7. BACTRIM [Concomitant]
     Indication: PROPHYLAXIS
  8. VANCOMYCIN [Concomitant]
     Indication: PROPHYLAXIS
  9. ACYCLOVIR [Concomitant]
     Indication: ANTIVIRAL PROPHYLAXIS

REACTIONS (8)
  - Back pain [Recovering/Resolving]
  - Arthralgia [Recovering/Resolving]
  - Musculoskeletal chest pain [Recovering/Resolving]
  - Deep vein thrombosis [Recovered/Resolved]
  - Device related infection [Recovering/Resolving]
  - Rash [Recovered/Resolved]
  - Haematochezia [Recovered/Resolved]
  - Pyrexia [Unknown]
